FAERS Safety Report 14460576 (Version 1)
Quarter: 2018Q1

REPORT INFORMATION
  Report Type: Spontaneous
  Country: US (occurrence: US)
  Receive Date: 20180130
  Receipt Date: 20180130
  Transmission Date: 20180509
  Serious: Yes (Life-Threatening, Hospitalization)
  Sender: FDA-Public Use
  Company Number: None

PATIENT
  Age: 64 Year
  Sex: Female
  Weight: 54.43 kg

DRUGS (5)
  1. SYNTHROID [Concomitant]
     Active Substance: LEVOTHYROXINE SODIUM
  2. QUETIAPINE. [Suspect]
     Active Substance: QUETIAPINE
     Indication: DEPRESSION
     Dosage: 100 MG - 5 100 MG PILL 25 MG 4XDAY, MOUTH?25 MG 4 25 MG PILLS 500 MG BEDTIME
     Route: 048
     Dates: start: 19980101
  3. QUETIAPINE. [Suspect]
     Active Substance: QUETIAPINE
     Indication: SCHIZOPHRENIA
     Dosage: 100 MG - 5 100 MG PILL 25 MG 4XDAY, MOUTH?25 MG 4 25 MG PILLS 500 MG BEDTIME
     Route: 048
     Dates: start: 19980101
  4. LAMICTAL [Concomitant]
     Active Substance: LAMOTRIGINE
  5. LIPITOR [Concomitant]
     Active Substance: ATORVASTATIN CALCIUM

REACTIONS (8)
  - Mental disorder [None]
  - Withdrawal syndrome [None]
  - Palpitations [None]
  - Blood pressure decreased [None]
  - Heart rate increased [None]
  - Movement disorder [None]
  - Nausea [None]
  - Vomiting [None]
